FAERS Safety Report 19166962 (Version 3)
Quarter: 2021Q2

REPORT INFORMATION
  Report Type: Report from Study
  Country: None (occurrence: US)
  Receive Date: 20210421
  Receipt Date: 20210513
  Transmission Date: 20210717
  Serious: Yes (Hospitalization, Other)
  Sender: FDA-Public Use
  Company Number: US-ABBVIE-21K-163-3865285-00

PATIENT
  Age: 68 Year
  Sex: Male

DRUGS (3)
  1. VENCLEXTA [Suspect]
     Active Substance: VENETOCLAX
     Route: 048
     Dates: start: 2021, end: 202104
  2. ENTRESTO [Suspect]
     Active Substance: SACUBITRIL\VALSARTAN
     Indication: PRODUCT USED FOR UNKNOWN INDICATION
     Route: 065
  3. VENCLEXTA [Suspect]
     Active Substance: VENETOCLAX
     Indication: ACUTE MYELOID LEUKAEMIA
     Route: 048
     Dates: start: 202002, end: 202103

REACTIONS (11)
  - Bone marrow disorder [Unknown]
  - Procedural complication [Unknown]
  - Blood pressure decreased [Unknown]
  - Stress [Unknown]
  - Musculoskeletal disorder [Unknown]
  - Haemoglobin abnormal [Unknown]
  - Angina pectoris [Unknown]
  - Cell death [Unknown]
  - Neoplasm malignant [Unknown]
  - Infection [Unknown]
  - White blood cell count decreased [Recovering/Resolving]

NARRATIVE: CASE EVENT DATE: 2021
